FAERS Safety Report 4960041-2 (Version None)
Quarter: 2006Q1

REPORT INFORMATION
  Report Type: 
  Country: None (occurrence: None)
  Receive Date: 20060331
  Receipt Date: 20051102
  Transmission Date: 20060701
  Serious: Yes (Hospitalization)
  Sender: FDA-Public Use
  Company Number: US-MERCK-0511USA00641

PATIENT
  Age: 64 Year
  Sex: Male
  Weight: 70 kg

DRUGS (18)
  1. ASPIRIN [Concomitant]
     Route: 065
     Dates: start: 19950101
  2. ALBUTEROL [Concomitant]
     Route: 055
  3. AZMACORT [Concomitant]
     Route: 055
  4. ADVAIR DISKUS 100/50 [Concomitant]
     Indication: PULMONARY CONGESTION
     Route: 065
  5. BACLOFEN [Concomitant]
     Route: 065
  6. ACETAMINOPHEN AND BUTALBITAL AND CAFFEINE [Concomitant]
     Indication: MIGRAINE
     Route: 065
  7. COMBIVENT [Concomitant]
     Route: 055
  8. LEVAQUIN [Concomitant]
     Route: 065
  9. ZOCOR [Concomitant]
     Indication: BLOOD CHOLESTEROL
     Route: 048
     Dates: start: 20000601
  10. SPIRIVA [Concomitant]
     Indication: PULMONARY CONGESTION
     Route: 065
  11. TOPAMAX [Concomitant]
     Indication: CONVULSION
     Route: 065
  12. TOPAMAX [Concomitant]
     Indication: MIGRAINE
     Route: 065
  13. PROTONIX [Concomitant]
     Indication: GASTROOESOPHAGEAL REFLUX DISEASE
     Route: 065
  14. PROMETHAZINE [Concomitant]
     Indication: NAUSEA
     Route: 065
  15. PROMETHAZINE [Concomitant]
     Indication: VOMITING
     Route: 065
  16. NITROQUICK [Concomitant]
     Indication: ANGINA PECTORIS
     Route: 065
  17. VIOXX [Suspect]
     Indication: ARTHRITIS
     Route: 048
     Dates: start: 19990101, end: 20040901
  18. VIOXX [Suspect]
     Indication: GOUT
     Route: 048
     Dates: start: 19990101, end: 20040901

REACTIONS (7)
  - ACUTE MYOCARDIAL INFARCTION [None]
  - AORTIC ANEURYSM [None]
  - BLOOD CHOLESTEROL INCREASED [None]
  - DEPRESSION [None]
  - HYPERTENSION [None]
  - LUNG NEOPLASM MALIGNANT [None]
  - PROSTATE CANCER [None]
